FAERS Safety Report 8253840-5 (Version None)
Quarter: 2012Q2

REPORT INFORMATION
  Report Type: 
  Country: None (occurrence: None)
  Receive Date: 20120402
  Receipt Date: 20120314
  Transmission Date: 20120825
  Serious: No
  Sender: FDA-Public Use
  Company Number: US-AMGEN-USASP2012016775

PATIENT
  Age: 84 Year
  Sex: Female

DRUGS (2)
  1. ENBREL [Suspect]
     Indication: RHEUMATOID ARTHRITIS
     Dosage: 50 MG, QWK
     Dates: start: 20111021
  2. ARAVA [Concomitant]
     Dosage: UNK

REACTIONS (3)
  - FREQUENT BOWEL MOVEMENTS [None]
  - FLATULENCE [None]
  - MUCOUS STOOLS [None]
